FAERS Safety Report 17590702 (Version 2)
Quarter: 2020Q4

REPORT INFORMATION
  Report Type: Spontaneous
  Country: FR (occurrence: FR)
  Receive Date: 20200327
  Receipt Date: 20201102
  Transmission Date: 20210113
  Serious: Yes (Disabling)
  Sender: FDA-Public Use
  Company Number: NVSC2020FR076031

PATIENT
  Age: 41 Year
  Sex: Female
  Weight: 77.7 kg

DRUGS (7)
  1. VENLAFAXINE [Suspect]
     Active Substance: VENLAFAXINE HYDROCHLORIDE
     Indication: MIXED ANXIETY AND DEPRESSIVE DISORDER
     Dosage: 75 MG,QD
     Route: 048
     Dates: end: 20191219
  2. LAMALINE (CAFFEINE + PAPAVER SOMNIFERUM + PARACETAMOL) [Suspect]
     Active Substance: ACETAMINOPHEN\CAFFEINE\OPIUM
     Indication: PAIN
     Dosage: 2 DF,QD
     Route: 048
  3. IMOVANE [Suspect]
     Active Substance: ZOPICLONE
     Indication: INSOMNIA
     Dosage: 1 DF,QD
     Route: 048
  4. NEXPLANON [Suspect]
     Active Substance: ETONOGESTREL
     Dosage: 1DF
     Route: 065
     Dates: start: 2016
  5. ALPRAZOLAM. [Suspect]
     Active Substance: ALPRAZOLAM
     Indication: MIXED ANXIETY AND DEPRESSIVE DISORDER
     Dosage: 1.5 MG,QD
     Route: 048
  6. NEXPLANON [Suspect]
     Active Substance: ETONOGESTREL
     Indication: CONTRACEPTION
     Dosage: 1 DF, QD
     Route: 057
     Dates: start: 2016
  7. PREGABALIN. [Suspect]
     Active Substance: PREGABALIN
     Indication: PAIN
     Dosage: 300 MG, QD
     Route: 048

REACTIONS (5)
  - Pulmonary arterial hypertension [Not Recovered/Not Resolved]
  - Aortic valve incompetence [Not Recovered/Not Resolved]
  - Mitral valve incompetence [Recovering/Resolving]
  - Cardiac valve disease [Not Recovered/Not Resolved]
  - Tricuspid valve incompetence [Recovering/Resolving]

NARRATIVE: CASE EVENT DATE: 201911
